FAERS Safety Report 5623526-1 (Version None)
Quarter: 2008Q1

REPORT INFORMATION
  Report Type: 
  Country: None (occurrence: None)
  Receive Date: 20080212
  Receipt Date: 20080201
  Transmission Date: 20080703
  Serious: Yes (Other)
  Sender: FDA-Public Use
  Company Number: DE-ELI_LILLY_AND_COMPANY-DE200711005011

PATIENT
  Sex: Female

DRUGS (6)
  1. BYETTA [Suspect]
     Dosage: 5 UG, 2/D
     Route: 058
     Dates: start: 20070820, end: 20070901
  2. BYETTA [Suspect]
     Dosage: 10 UG, 2/D
     Route: 058
     Dates: start: 20070901, end: 20071119
  3. RAMIPRIL [Concomitant]
     Dosage: UNK, EACH EVENING
  4. RAMIPRIL COMP [Concomitant]
     Dosage: UNK, EACH MORNING
  5. METFORMIN HCL [Concomitant]
     Dosage: 2 D/F, DAILY (1/D)
  6. GLIMEPIRIDE [Concomitant]
     Dosage: 6 MG, 1/2 TABLET. EACH EVENING

REACTIONS (2)
  - PANCREATITIS ACUTE [None]
  - WEIGHT DECREASED [None]
